FAERS Safety Report 16015196 (Version 1)
Quarter: 2019Q1

REPORT INFORMATION
  Report Type: Report from Study
  Country: None (occurrence: LU)
  Receive Date: 20190228
  Receipt Date: 20190228
  Transmission Date: 20190418
  Serious: Yes (Hospitalization)
  Sender: FDA-Public Use
  Company Number: LU-ABBVIE-19S-098-2681214-00

PATIENT
  Sex: Female

DRUGS (19)
  1. DUODOPA [Suspect]
     Active Substance: CARBIDOPA\LEVODOPA
     Dosage: DOSES CONTINUOUSLY MONITORED AND ADAPTED
     Route: 050
     Dates: start: 20160803, end: 20180824
  2. DUODOPA [Suspect]
     Active Substance: CARBIDOPA\LEVODOPA
     Indication: PARKINSON^S DISEASE
     Dosage: MD=6.6ML CD=3.8ML/HR DURING 16HRS  ED=1.7ML
     Route: 050
     Dates: start: 20160715, end: 20160803
  3. PK MERZ [Concomitant]
     Active Substance: AMANTADINE SULFATE
  4. QUETIAPIN [Concomitant]
     Active Substance: QUETIAPINE
  5. PK MERZ [Concomitant]
     Active Substance: AMANTADINE SULFATE
     Indication: PARKINSON^S DISEASE
     Route: 048
  6. BISOPROLOL [Concomitant]
     Active Substance: BISOPROLOL
     Indication: PRODUCT USED FOR UNKNOWN INDICATION
  7. BISOPROLOL [Concomitant]
     Active Substance: BISOPROLOL
  8. ZOPLICON [Concomitant]
     Indication: PRODUCT USED FOR UNKNOWN INDICATION
  9. PANTOPRAZOLE [Concomitant]
     Active Substance: PANTOPRAZOLE
     Indication: PRODUCT USED FOR UNKNOWN INDICATION
  10. RELAXINE [Concomitant]
     Indication: PRODUCT USED FOR UNKNOWN INDICATION
     Dosage: 3 TIMES A DAY,  IF NECESSARY
  11. DEKRISTOL [Concomitant]
     Active Substance: CHOLECALCIFEROL
     Indication: PRODUCT USED FOR UNKNOWN INDICATION
  12. DUODOPA [Suspect]
     Active Substance: CARBIDOPA\LEVODOPA
     Dosage: MD=7ML CD IS BETWEEN 4.2ML/HR AND 6ML/HR DURING 16HRS  ED IS BETWEEN 1.5ML AND 3ML
     Route: 050
     Dates: start: 20180824
  13. BETMIGA [Concomitant]
     Active Substance: MIRABEGRON
     Indication: PRODUCT USED FOR UNKNOWN INDICATION
  14. MOTILIUM [Concomitant]
     Active Substance: DOMPERIDONE
     Indication: PRODUCT USED FOR UNKNOWN INDICATION
  15. BETMIGA [Concomitant]
     Active Substance: MIRABEGRON
  16. XARELTO [Concomitant]
     Active Substance: RIVAROXABAN
     Indication: PRODUCT USED FOR UNKNOWN INDICATION
  17. TEMESTA [LORAZEPAM] [Concomitant]
     Active Substance: LORAZEPAM
     Indication: PRODUCT USED FOR UNKNOWN INDICATION
     Dosage: IF NECESSARY
  18. QUETIAPIN [Concomitant]
     Active Substance: QUETIAPINE
     Indication: PRODUCT USED FOR UNKNOWN INDICATION
  19. PANTOPRAZOLE [Concomitant]
     Active Substance: PANTOPRAZOLE

REACTIONS (1)
  - Abdominal pain [Unknown]
